FAERS Safety Report 6687223-6 (Version None)
Quarter: 2010Q2

REPORT INFORMATION
  Report Type: 
  Country: None (occurrence: None)
  Receive Date: 20100419
  Receipt Date: 20091013
  Transmission Date: 20101027
  Serious: Yes (Other)
  Sender: FDA-Public Use
  Company Number: US-ABBOTT-09P-163-0602351-00

PATIENT

DRUGS (1)
  1. ZEMPLAR [Suspect]
     Indication: DRUG USE FOR UNKNOWN INDICATION
     Route: 042
     Dates: start: 20060101

REACTIONS (2)
  - BLOOD CALCIUM DECREASED [None]
  - BLOOD PARATHYROID HORMONE INCREASED [None]
